FAERS Safety Report 7378794-5 (Version None)
Quarter: 2011Q1

REPORT INFORMATION
  Report Type: 
  Country: None (occurrence: None)
  Receive Date: 20110328
  Receipt Date: 20110318
  Transmission Date: 20110831
  Serious: Yes (Death, Hospitalization, Other)
  Sender: FDA-Public Use
  Company Number: US-BAXTER-2008BH000814

PATIENT
  Age: 41 Year
  Sex: Male
  Weight: 63 kg

DRUGS (35)
  1. HEPARIN SODIUM INJECTION [Suspect]
     Route: 033
     Dates: start: 20080115, end: 20080115
  2. HEPARIN SODIUM INJECTION [Suspect]
     Route: 010
     Dates: start: 20090401, end: 20090519
  3. HEPARIN SODIUM INJECTION [Suspect]
     Route: 010
     Dates: start: 20090401, end: 20090519
  4. CLONIDINE [Concomitant]
     Indication: HYPERTENSION
     Route: 048
     Dates: start: 19970101
  5. HEPARIN SODIUM INJECTION [Suspect]
     Route: 042
     Dates: start: 20080120, end: 20080122
  6. HEPARIN SODIUM INJECTION [Suspect]
     Route: 065
     Dates: start: 20080222, end: 20080223
  7. K-DUR [Concomitant]
     Indication: MINERAL SUPPLEMENTATION
     Dosage: DOSE UNIT:UNKNOWN
     Route: 048
     Dates: start: 19970101
  8. QUINAPRIL [Concomitant]
     Indication: PRODUCT USED FOR UNKNOWN INDICATION
     Route: 065
  9. MORPHINE [Concomitant]
     Indication: PRODUCT USED FOR UNKNOWN INDICATION
     Route: 065
  10. ANTIBIOTICS [Concomitant]
     Indication: PRODUCT USED FOR UNKNOWN INDICATION
     Route: 065
  11. CORTICOSTEROIDS [Concomitant]
     Indication: PRODUCT USED FOR UNKNOWN INDICATION
     Route: 065
  12. HEPARIN SODIUM INJECTION [Suspect]
     Route: 065
     Dates: start: 20080222, end: 20080223
  13. CLONIDINE [Concomitant]
     Indication: PRODUCT USED FOR UNKNOWN INDICATION
     Route: 065
  14. PHOSLO [Concomitant]
     Indication: PRODUCT USED FOR UNKNOWN INDICATION
     Route: 065
  15. HEPARIN SODIUM INJECTION [Suspect]
     Indication: HAEMODIALYSIS
     Route: 033
     Dates: start: 20080116
  16. HEPARIN SODIUM INJECTION [Suspect]
     Route: 033
     Dates: start: 20080115, end: 20080115
  17. PROTONIX [Concomitant]
     Indication: GASTRIC DISORDER
     Route: 048
     Dates: start: 20080120, end: 20080128
  18. ASPIRIN [Concomitant]
     Indication: PRODUCT USED FOR UNKNOWN INDICATION
     Route: 065
  19. ZOFRAN [Concomitant]
     Indication: PRODUCT USED FOR UNKNOWN INDICATION
     Route: 065
  20. IRON [Concomitant]
     Indication: PRODUCT USED FOR UNKNOWN INDICATION
     Route: 065
  21. HEPARIN SODIUM INJECTION [Suspect]
     Route: 033
     Dates: start: 20080115, end: 20080115
  22. HEPARIN SODIUM INJECTION [Suspect]
     Route: 058
     Dates: start: 20090404, end: 20090417
  23. HEPARIN SODIUM INJECTION [Suspect]
     Route: 010
     Dates: start: 20090401, end: 20090519
  24. HEPARIN SODIUM 10,000 UNITS IN SODIUM CHLORIDE 0.45% [Suspect]
     Indication: DEEP VEIN THROMBOSIS
     Route: 042
     Dates: start: 20090515, end: 20090519
  25. NEPHROCAPS [Concomitant]
     Indication: RENAL FAILURE
     Route: 048
     Dates: start: 19970101
  26. LORTAB [Concomitant]
     Indication: PRODUCT USED FOR UNKNOWN INDICATION
     Route: 065
  27. HEPARIN SODIUM INJECTION [Suspect]
     Indication: PROPHYLAXIS
     Route: 033
     Dates: start: 20080116
  28. HEPARIN SODIUM INJECTION [Suspect]
     Route: 058
     Dates: start: 20090404, end: 20090417
  29. HEPARIN SODIUM INJECTION [Suspect]
     Route: 058
     Dates: start: 20090404, end: 20090417
  30. PROMETHAZINE [Concomitant]
     Indication: NAUSEA
     Route: 048
     Dates: start: 20080120
  31. HEPARIN SODIUM INJECTION [Suspect]
     Indication: PERITONEAL DIALYSIS
     Route: 033
     Dates: start: 20080116
  32. HEPARIN SODIUM INJECTION [Suspect]
     Route: 042
     Dates: start: 20080120, end: 20080122
  33. HEPARIN SODIUM INJECTION [Suspect]
     Route: 065
     Dates: start: 20080222, end: 20080223
  34. FLUCONAZOLE [Concomitant]
     Indication: NAUSEA
     Route: 048
     Dates: start: 20080120, end: 20080128
  35. HEPARIN SODIUM INJECTION [Suspect]
     Route: 042
     Dates: start: 20080120, end: 20080122

REACTIONS (29)
  - PLEURAL EFFUSION [None]
  - SYNCOPE [None]
  - DYSPNOEA [None]
  - NAUSEA [None]
  - RENAL FAILURE CHRONIC [None]
  - METABOLIC ACIDOSIS [None]
  - HYPOVOLAEMIA [None]
  - INTESTINAL PERFORATION [None]
  - HYPOGLYCAEMIA [None]
  - ATRIAL FLUTTER [None]
  - DEEP VEIN THROMBOSIS [None]
  - DYSPEPSIA [None]
  - VOMITING [None]
  - GASTROINTESTINAL HAEMORRHAGE [None]
  - SMALL INTESTINAL PERFORATION [None]
  - HEPATIC ENZYME INCREASED [None]
  - BLOOD PRESSURE INCREASED [None]
  - MALNUTRITION [None]
  - INFUSION SITE INFECTION [None]
  - HYPOTENSION [None]
  - HEPARIN-INDUCED THROMBOCYTOPENIA [None]
  - DIARRHOEA [None]
  - HYPOALBUMINAEMIA [None]
  - ABDOMINAL PAIN [None]
  - SHOCK [None]
  - ANAEMIA [None]
  - SEPSIS [None]
  - PERITONITIS BACTERIAL [None]
  - TESTICULAR PAIN [None]
